FAERS Safety Report 6551199-2 (Version None)
Quarter: 2010Q1

REPORT INFORMATION
  Report Type: 
  Country: None (occurrence: None)
  Receive Date: 20100121
  Receipt Date: 20100107
  Transmission Date: 20100710
  Serious: Yes (Disabling, Other)
  Sender: FDA-Public Use
  Company Number: CAP10000032

PATIENT
  Age: 79 Year
  Sex: Female
  Weight: 72 kg

DRUGS (6)
  1. ETIDRONATE DISODIUM [Suspect]
  2. ACTONEL [Concomitant]
  3. ALTACE (RAMIPRIL) CAPSULE [Concomitant]
  4. ATENOLOL [Concomitant]
  5. HYDROCHLOROTHIAZIDE [Concomitant]
  6. NORVASC [Concomitant]

REACTIONS (1)
  - STRESS FRACTURE [None]
